FAERS Safety Report 10650670 (Version 1)
Quarter: 2014Q4

REPORT INFORMATION
  Report Type: Report from Study
  Country: BR (occurrence: BR)
  Receive Date: 20141214
  Receipt Date: 20141214
  Transmission Date: 20150529
  Serious: Yes (Death, Other)
  Sender: FDA-Public Use
  Company Number: PHHY2014BR163004

PATIENT
  Age: 78 Year
  Sex: Male
  Weight: 92 kg

DRUGS (6)
  1. DIAMICRON [Concomitant]
     Active Substance: GLICLAZIDE
     Indication: DIABETES MELLITUS
     Dosage: 10 MG, QD
     Route: 048
  2. MONOCORDIL [Concomitant]
     Active Substance: ISOSORBIDE MONONITRATE
     Indication: VASODILATATION
     Dosage: 20 MG, QD
     Route: 048
     Dates: start: 2011
  3. SELOZOK [Concomitant]
     Active Substance: METOPROLOL SUCCINATE
     Indication: CARDIAC DISORDER
     Route: 048
  4. LASIX [Concomitant]
     Active Substance: FUROSEMIDE
     Indication: BLOOD PRESSURE FLUCTUATION
     Route: 060
  5. DIOVAN [Suspect]
     Active Substance: VALSARTAN
     Indication: CARDIAC DISORDER
  6. DIOVAN [Suspect]
     Active Substance: VALSARTAN
     Indication: HYPERTENSION
     Dosage: 1 DF, QD (AT NIGHT)
     Route: 048

REACTIONS (4)
  - Arterial occlusive disease [Recovered/Resolved]
  - Cardiac arrest [Fatal]
  - Cardiac disorder [Unknown]
  - Infarction [Fatal]

NARRATIVE: CASE EVENT DATE: 2011
